FAERS Safety Report 24553672 (Version 1)
Quarter: 2024Q4

REPORT INFORMATION
  Report Type: Report from Study
  Country: US (occurrence: US)
  Receive Date: 20241028
  Receipt Date: 20241028
  Transmission Date: 20250114
  Serious: No
  Sender: ROCHE
  Company Number: US-ROCHE-3558895

PATIENT
  Age: 76 Year
  Sex: Male
  Weight: 138.3 kg

DRUGS (10)
  1. NUTROPIN AQ [Suspect]
     Active Substance: SOMATROPIN
     Indication: Hypopituitarism
     Route: 058
  2. TESTOSTERONE [Concomitant]
     Active Substance: TESTOSTERONE
  3. ELIQUIS [Concomitant]
     Active Substance: APIXABAN
  4. TOPIRAMATE [Concomitant]
     Active Substance: TOPIRAMATE
  5. MODAFINIL [Concomitant]
     Active Substance: MODAFINIL
  6. ULORIC [Concomitant]
     Active Substance: FEBUXOSTAT
  7. ASPIRIN [Concomitant]
     Active Substance: ASPIRIN
  8. SPIRONOLACTONE [Concomitant]
     Active Substance: SPIRONOLACTONE
  9. DOXAZOSIN [Concomitant]
     Active Substance: DOXAZOSIN\DOXAZOSIN MESYLATE
  10. CHLORTHALIDONE [Concomitant]
     Active Substance: CHLORTHALIDONE

REACTIONS (2)
  - Carpal tunnel syndrome [Unknown]
  - Peripheral sensory neuropathy [Unknown]
